FAERS Safety Report 12672156 (Version 2)
Quarter: 2016Q3

REPORT INFORMATION
  Report Type: Spontaneous
  Country: US (occurrence: US)
  Receive Date: 20160822
  Receipt Date: 20160912
  Transmission Date: 20161109
  Serious: No
  Sender: FDA-Public Use
  Company Number: US-PFIZER INC-2016395495

PATIENT
  Age: 48 Year
  Sex: Female

DRUGS (1)
  1. ADVIL [Suspect]
     Active Substance: IBUPROFEN
     Indication: HEADACHE
     Dosage: 400 MG, DAILY, 200 MG, TWO TABLETS
     Route: 048
     Dates: end: 20160817

REACTIONS (6)
  - Rash [Unknown]
  - Hypersensitivity [Unknown]
  - Condition aggravated [Not Recovered/Not Resolved]
  - Expired product administered [Unknown]
  - Rash macular [Not Recovered/Not Resolved]
  - Pruritus [Not Recovered/Not Resolved]

NARRATIVE: CASE EVENT DATE: 201608
